FAERS Safety Report 4293689-1 (Version None)
Quarter: 2004Q1

REPORT INFORMATION
  Report Type: 
  Country: None (occurrence: None)
  Receive Date: 20040211
  Receipt Date: 20040211
  Transmission Date: 20041129
  Serious: Yes (Other)
  Sender: FDA-Public Use
  Company Number: None

PATIENT
  Age: 30 Year
  Sex: Female
  Weight: 70 kg

DRUGS (1)
  1. BUPIVICAINE  0.75%  SPINAL [Suspect]
     Indication: TUBAL LIGATION
     Dosage: 1.4 ML ONCE INTRADISCAL
     Route: 024
     Dates: start: 20031014, end: 20031014

REACTIONS (1)
  - DRUG INEFFECTIVE [None]
